FAERS Safety Report 8024325-6 (Version None)
Quarter: 2012Q1

REPORT INFORMATION
  Report Type: 
  Country: None (occurrence: None)
  Receive Date: 20120105
  Receipt Date: 20120104
  Transmission Date: 20120608
  Serious: Yes (Hospitalization)
  Sender: FDA-Public Use
  Company Number: GB-AMGEN-GBRCT2012000286

PATIENT
  Age: 88 Year
  Sex: Female

DRUGS (3)
  1. BLINDED DARBEPOETIN ALFA [Suspect]
     Dosage: UNK UNK, Q4WK
     Route: 058
     Dates: start: 20100729
  2. BLINDED DARBEPOETIN ALFA [Suspect]
     Indication: CARDIAC FAILURE
     Dosage: UNK UNK, Q4WK
     Route: 058
     Dates: start: 20100729
  3. BLINDED PLACEBO [Suspect]
     Indication: CARDIAC FAILURE
     Dosage: UNK UNK, Q4WK
     Route: 058
     Dates: start: 20100729

REACTIONS (1)
  - URINARY TRACT INFECTION [None]
